FAERS Safety Report 19249554 (Version 1)
Quarter: 2021Q2

REPORT INFORMATION
  Report Type: Spontaneous
  Country: US (occurrence: US)
  Receive Date: 20210512
  Receipt Date: 20210512
  Transmission Date: 20210717
  Serious: Yes (Death)
  Sender: FDA-Public Use
  Company Number: US-ROCHE-2824096

PATIENT
  Sex: Male

DRUGS (11)
  1. LOVENOX [Concomitant]
     Active Substance: ENOXAPARIN SODIUM
  2. 5?FU [Concomitant]
     Active Substance: FLUOROURACIL
     Indication: COLON CANCER
     Dates: start: 2012, end: 2015
  3. PEMETREXED. [Concomitant]
     Active Substance: PEMETREXED
     Indication: NEOPLASM MALIGNANT
     Route: 042
     Dates: start: 2016, end: 2016
  4. LONSURF [Concomitant]
     Active Substance: TIPIRACIL HYDROCHLORIDE\TRIFLURIDINE
     Route: 048
  5. MITOMYCIN. [Concomitant]
     Active Substance: MITOMYCIN
     Indication: NEOPLASM MALIGNANT
     Route: 042
     Dates: start: 2016, end: 2016
  6. WARFARIN [Concomitant]
     Active Substance: WARFARIN
     Indication: ANTICOAGULANT THERAPY
     Route: 048
     Dates: start: 1988, end: 20190611
  7. STIVARGA [Concomitant]
     Active Substance: REGORAFENIB
     Route: 048
  8. AVASTIN [Suspect]
     Active Substance: BEVACIZUMAB
     Route: 042
     Dates: start: 20190611, end: 20190614
  9. OXALIPLATIN. [Concomitant]
     Active Substance: OXALIPLATIN
     Indication: COLON CANCER
     Dates: start: 2012, end: 2015
  10. AVASTIN [Suspect]
     Active Substance: BEVACIZUMAB
     Indication: COLON CANCER
     Route: 042
     Dates: start: 20120924, end: 2015
  11. XELODA [Suspect]
     Active Substance: CAPECITABINE
     Indication: COLON CANCER METASTATIC
     Route: 048
     Dates: start: 2015, end: 201608

REACTIONS (5)
  - Swelling [Recovered/Resolved]
  - Haemorrhage [Fatal]
  - Weight increased [Recovered/Resolved]
  - Alopecia [Unknown]
  - Diarrhoea [Unknown]
